FAERS Safety Report 5645478-0 (Version None)
Quarter: 2008Q1

REPORT INFORMATION
  Report Type: 
  Country: None (occurrence: None)
  Receive Date: 20080229
  Receipt Date: 20070925
  Transmission Date: 20080703
  Serious: Yes (Other)
  Sender: FDA-Public Use
  Company Number: US-BRISTOL-MYERS SQUIBB COMPANY-13919154

PATIENT
  Age: 41 Year
  Sex: Female
  Weight: 68 kg

DRUGS (7)
  1. TAXOL [Suspect]
     Indication: NEOPLASM MALIGNANT
     Dosage: 230MG IN 250ML NORMAL SALINE
     Route: 042
     Dates: start: 20070925, end: 20070925
  2. GLUCOTROL [Concomitant]
  3. ERBITUX [Concomitant]
     Route: 042
     Dates: start: 20070924
  4. ZOFRAN [Concomitant]
     Indication: PREMEDICATION
     Route: 042
     Dates: start: 20070925
  5. DECADRON [Concomitant]
     Indication: PREMEDICATION
     Route: 042
     Dates: start: 20070925
  6. PEPCID [Concomitant]
     Indication: PREMEDICATION
     Route: 042
  7. BENADRYL [Concomitant]
     Indication: PREMEDICATION
     Route: 042
     Dates: start: 20070925

REACTIONS (5)
  - ABDOMINAL PAIN UPPER [None]
  - CHEST PAIN [None]
  - DIZZINESS [None]
  - FLUSHING [None]
  - PARAESTHESIA [None]
